FAERS Safety Report 4320142-9 (Version None)
Quarter: 2004Q1

REPORT INFORMATION
  Report Type: 
  Country: None (occurrence: None)
  Receive Date: 20040317
  Receipt Date: 20040311
  Transmission Date: 20041129
  Serious: Yes (Hospitalization)
  Sender: FDA-Public Use
  Company Number: FRWYE 633311MAR04

PATIENT
  Age: 73 Year
  Sex: Male

DRUGS (6)
  1. TAZOCILLINE (PIPERACILLIN/ TAZOBACTAM, INJECTION) [Suspect]
     Indication: ENDOCARDITIS STAPHYLOCOCCAL
     Dosage: FROM 8 G DAILY TO 4 G DAILY, INTRAVENOUS
     Route: 042
     Dates: start: 20040110, end: 20040120
  2. HYPONOVEL (MIDAZOLAM HYDROCHLORIDE, 0) [Suspect]
     Dosage: 8 MG DAILY, INTRAVENOUS
     Route: 042
     Dates: end: 20040120
  3. LEVOPHED [Concomitant]
  4. HEPARIN SODIUM [Concomitant]
  5. CORDARONE [Concomitant]
  6. OMEPRAZOLE [Concomitant]

REACTIONS (3)
  - BILIARY TRACT INFECTION [None]
  - ENCEPHALOPATHY [None]
  - OVERDOSE [None]
